FAERS Safety Report 13579434 (Version 1)
Quarter: 2017Q2

REPORT INFORMATION
  Report Type: Spontaneous
  Country: US (occurrence: US)
  Receive Date: 20170524
  Receipt Date: 20170524
  Transmission Date: 20170830
  Serious: Yes (Hospitalization)
  Sender: FDA-Public Use
  Company Number: None

PATIENT
  Age: 64 Year
  Sex: Female
  Weight: 125.5 kg

DRUGS (10)
  1. RASBURICASE [Suspect]
     Active Substance: RASBURICASE
     Indication: HYPERURICAEMIA
     Dosage: ?          OTHER FREQUENCY:ONE TIME DOSE;?
     Route: 040
     Dates: start: 20170520
  2. DILTIAZEM. [Concomitant]
     Active Substance: DILTIAZEM
  3. LISINOPRIL. [Concomitant]
     Active Substance: LISINOPRIL
  4. HEPARIN [Concomitant]
     Active Substance: HEPARIN SODIUM
  5. ASPIRIN. [Concomitant]
     Active Substance: ASPIRIN
  6. CHLORTHALIDONE. [Concomitant]
     Active Substance: CHLORTHALIDONE
  7. INSULIN REGULAR [Concomitant]
     Active Substance: INSULIN NOS
  8. ACETAMINOPHEN. [Concomitant]
     Active Substance: ACETAMINOPHEN
  9. DILTIAZEM. [Concomitant]
     Active Substance: DILTIAZEM
  10. SODIUM BICARBONATE. [Concomitant]
     Active Substance: SODIUM BICARBONATE

REACTIONS (1)
  - Methaemoglobinaemia [None]

NARRATIVE: CASE EVENT DATE: 20170520
